FAERS Safety Report 5524458-X (Version None)
Quarter: 2007Q4

REPORT INFORMATION
  Report Type: 
  Country: None (occurrence: None)
  Receive Date: 20071122
  Receipt Date: 20071113
  Transmission Date: 20080405
  Serious: Yes (Other)
  Sender: FDA-Public Use
  Company Number: PHHO2006DE07417

PATIENT
  Sex: Female
  Weight: 74 kg

DRUGS (1)
  1. ZOLEDRONIC ACID [Suspect]
     Indication: BREAST CANCER
     Dosage: 4 MG Q 3 MONTHS
     Route: 042
     Dates: start: 20060504, end: 20060504

REACTIONS (2)
  - BONE PAIN [None]
  - PYREXIA [None]
